FAERS Safety Report 21327769 (Version 3)
Quarter: 2022Q4

REPORT INFORMATION
  Report Type: Spontaneous
  Country: DE (occurrence: DE)
  Receive Date: 20220913
  Receipt Date: 20221019
  Transmission Date: 20230112
  Serious: Yes (Hospitalization, Other)
  Sender: FDA-Public Use
  Company Number: DE-LUPIN PHARMACEUTICALS INC.-2022-11019

PATIENT
  Age: 30 Year
  Sex: Female

DRUGS (11)
  1. QUETIAPINE FUMARATE [Interacting]
     Active Substance: QUETIAPINE FUMARATE
     Indication: Schizophrenia
     Dosage: 900 MG, QD
     Route: 065
  2. QUETIAPINE FUMARATE [Interacting]
     Active Substance: QUETIAPINE FUMARATE
     Dosage: 300 MG, QD
     Route: 065
  3. QUETIAPINE FUMARATE [Interacting]
     Active Substance: QUETIAPINE FUMARATE
     Dosage: 300 MG, QD
     Route: 065
  4. QUETIAPINE FUMARATE [Interacting]
     Active Substance: QUETIAPINE FUMARATE
     Dosage: 150 MG, QD
     Route: 065
  5. CARIPRAZINE [Interacting]
     Active Substance: CARIPRAZINE
     Indication: Schizophrenia
     Dosage: 1.5 MG, QD
     Route: 065
  6. CARIPRAZINE [Interacting]
     Active Substance: CARIPRAZINE
     Dosage: 3 MG, QD
     Route: 065
  7. CARIPRAZINE [Interacting]
     Active Substance: CARIPRAZINE
     Dosage: 1.5 MG, QD
     Route: 065
  8. RISPERIDONE [Concomitant]
     Active Substance: RISPERIDONE
     Indication: Schizophrenia
     Dosage: 5 MG, QD
     Route: 065
  9. AMISULPRIDE [Concomitant]
     Active Substance: AMISULPRIDE
     Indication: Schizophrenia
     Dosage: UNK
     Route: 065
  10. AMISULPRIDE [Concomitant]
     Active Substance: AMISULPRIDE
     Dosage: 500 MG, QD (TITRATED TO 500)
     Route: 065
  11. LAMOTRIGINE [Concomitant]
     Active Substance: LAMOTRIGINE
     Indication: Schizophrenia
     Dosage: 100 MG, QD
     Route: 065

REACTIONS (6)
  - Akathisia [Recovering/Resolving]
  - Drug interaction [Unknown]
  - Rebound effect [Unknown]
  - Insomnia [Unknown]
  - Euphoric mood [Unknown]
  - Aggression [Unknown]
